FAERS Safety Report 4592458-2 (Version None)
Quarter: 2005Q1

REPORT INFORMATION
  Report Type: 
  Country: None (occurrence: None)
  Receive Date: 20050222
  Receipt Date: 20050211
  Transmission Date: 20050727
  Serious: Yes (Other)
  Sender: FDA-Public Use
  Company Number: 2005002044

PATIENT
  Age: 20 Year
  Sex: Female

DRUGS (5)
  1. DEPO-PROVERA [Suspect]
     Indication: ILL-DEFINED DISORDER
     Dosage: 150 MG (150 MG, EVERY 12 WEEKS), INTRAMUSCULAR
     Route: 030
  2. TERBUTALINE SULFATE [Concomitant]
  3. CARBAMAZEPINE [Concomitant]
  4. OXYBUTYNIN CHLORIDE [Concomitant]
  5. SYMBICORT TURBUHALER ^DRACO (BUDESONIDE, FORMOTEROL FUMARATE) [Concomitant]

REACTIONS (2)
  - BLOOD PRESSURE INCREASED [None]
  - DRUG INTERACTION [None]
